FAERS Safety Report 6826745-1 (Version None)
Quarter: 2010Q3

REPORT INFORMATION
  Report Type: 
  Country: None (occurrence: None)
  Receive Date: 20100709
  Receipt Date: 20100629
  Transmission Date: 20110219
  Serious: Yes (Death)
  Sender: FDA-Public Use
  Company Number: US-PFIZER INC-2010066151

PATIENT
  Sex: Male
  Weight: 53.977 kg

DRUGS (1)
  1. CAMPTOSAR [Suspect]
     Indication: ADENOMATOUS POLYPOSIS COLI
     Dosage: 270 MG, EVERY 14 DAYS

REACTIONS (1)
  - DEATH [None]
